FAERS Safety Report 5919898-0 (Version None)
Quarter: 2008Q3

REPORT INFORMATION
  Report Type: 
  Country: None (occurrence: None)
  Receive Date: 20080909
  Receipt Date: 20070907
  Transmission Date: 20090109
  Serious: Yes (Other)
  Sender: FDA-Public Use
  Company Number: 163-20785-07070400

PATIENT
  Age: 74 Year
  Sex: Female

DRUGS (2)
  1. THALOMID [Suspect]
     Indication: MULTIPLE MYELOMA
     Dosage: 100 MG, QD, ORAL
     Route: 048
     Dates: start: 20060407, end: 20070611
  2. THALOMID [Suspect]

REACTIONS (4)
  - HYPOAESTHESIA [None]
  - MONOCLONAL IMMUNOGLOBULIN PRESENT [None]
  - NEUROPATHY PERIPHERAL [None]
  - RENAL FAILURE [None]
